FAERS Safety Report 16916378 (Version 1)
Quarter: 2019Q4

REPORT INFORMATION
  Report Type: Spontaneous
  Country: PL (occurrence: PL)
  Receive Date: 20191014
  Receipt Date: 20191014
  Transmission Date: 20200122
  Serious: Yes (Other)
  Sender: FDA-Public Use
  Company Number: PL-JNJFOC-20191013629

PATIENT
  Age: 90 Year
  Sex: Female

DRUGS (2)
  1. RIVAROXABAN [Suspect]
     Active Substance: RIVAROXABAN
     Indication: ATRIAL FIBRILLATION
     Dosage: 15 MG, QD
     Route: 048
  2. HEVIRAN [Suspect]
     Active Substance: ACYCLOVIR
     Indication: HERPES ZOSTER
     Dosage: UNK
     Route: 048

REACTIONS (18)
  - Peripheral artery stenosis [Unknown]
  - Tonsillitis [Unknown]
  - Paraesthesia [Unknown]
  - Pruritus [Unknown]
  - Headache [Unknown]
  - Haematoma [Unknown]
  - Skin hypertrophy [Unknown]
  - Eye pain [Unknown]
  - Pain of skin [Recovering/Resolving]
  - Conjunctivitis [Unknown]
  - Joint stiffness [Unknown]
  - Hyperaesthesia [Unknown]
  - Head injury [Unknown]
  - Heart rate increased [Unknown]
  - Carotid artery stenosis [Unknown]
  - Herpes zoster [Unknown]
  - External ear pain [Unknown]
  - Burning sensation [Unknown]

NARRATIVE: CASE EVENT DATE: 20191003
